FAERS Safety Report 9106039 (Version 1)
Quarter: 2013Q1

REPORT INFORMATION
  Report Type: Spontaneous
  Country: US (occurrence: US)
  Receive Date: 20130220
  Receipt Date: 20130220
  Transmission Date: 20140127
  Serious: Yes (Hospitalization)
  Sender: FDA-Public Use
  Company Number: US-PFIZER INC-2013062886

PATIENT
  Age: 64 Year
  Sex: Female

DRUGS (1)
  1. GABAPENTIN [Suspect]
     Indication: DIABETIC NEUROPATHY
     Dosage: 900 MG(BY TAKING ONE AND A HALF TABLET OF 600MG), 3X/DAY
     Route: 048

REACTIONS (3)
  - Back disorder [Unknown]
  - Pain [Not Recovered/Not Resolved]
  - Drug ineffective [Unknown]
